FAERS Safety Report 26115412 (Version 1)
Quarter: 2025Q4

REPORT INFORMATION
  Report Type: Report from Study
  Country: GB (occurrence: GB)
  Receive Date: 20251203
  Receipt Date: 20251203
  Transmission Date: 20260118
  Serious: Yes (Other)
  Sender: ROCHE
  Company Number: GB-ROCHE-3563978

PATIENT
  Age: 62 Year
  Sex: Male
  Weight: 106.6 kg

DRUGS (49)
  1. ATEZOLIZUMAB [Suspect]
     Active Substance: ATEZOLIZUMAB
     Indication: Hepatocellular carcinoma
     Route: 042
     Dates: start: 20230428
  2. BEVACIZUMAB [Suspect]
     Active Substance: BEVACIZUMAB
     Indication: Hepatocellular carcinoma
     Route: 042
     Dates: start: 20230428
  3. SILDENAFIL [Concomitant]
     Active Substance: SILDENAFIL
  4. SILDENAFIL [Concomitant]
     Active Substance: SILDENAFIL
     Dates: start: 20200330
  5. SODIUM ALGINATE [Concomitant]
     Active Substance: SODIUM ALGINATE
     Dates: start: 20240326
  6. RAMIPRIL [Concomitant]
     Active Substance: RAMIPRIL
  7. RAMIPRIL [Concomitant]
     Active Substance: RAMIPRIL
     Dates: start: 20200330, end: 20240509
  8. RAMIPRIL [Concomitant]
     Active Substance: RAMIPRIL
  9. CLINDAMYCIN [Concomitant]
     Active Substance: CLINDAMYCIN
     Dates: start: 20240325, end: 20240401
  10. TEICOPLANIN [Concomitant]
     Active Substance: TEICOPLANIN
     Dates: start: 20240315, end: 20240317
  11. DAPAGLIFLOZIN [Concomitant]
     Active Substance: DAPAGLIFLOZIN
     Dates: start: 20200330
  12. DAPAGLIFLOZIN [Concomitant]
     Active Substance: DAPAGLIFLOZIN
  13. ENOXAPARIN [Concomitant]
     Active Substance: ENOXAPARIN
     Dates: start: 20240320, end: 20240326
  14. ATORVASTATIN [Concomitant]
     Active Substance: ATORVASTATIN
     Dates: start: 20200330
  15. ATORVASTATIN [Concomitant]
     Active Substance: ATORVASTATIN
  16. PIPERACILLIN AND TAZOBACTAM [Concomitant]
     Active Substance: PIPERACILLIN SODIUM\TAZOBACTAM SODIUM
     Dates: start: 20240314, end: 20240317
  17. ALOGLIPTIN [Concomitant]
     Active Substance: ALOGLIPTIN
  18. ALOGLIPTIN [Concomitant]
     Active Substance: ALOGLIPTIN
     Dates: start: 20200330
  19. ALOGLIPTIN [Concomitant]
     Active Substance: ALOGLIPTIN
  20. FLUCLOXACILLIN [Concomitant]
     Active Substance: FLUCLOXACILLIN
     Dates: start: 20240226, end: 20240226
  21. FLUCLOXACILLIN [Concomitant]
     Active Substance: FLUCLOXACILLIN
     Dates: start: 20240317, end: 20240325
  22. BUPRENORPHINE [Concomitant]
     Active Substance: BUPRENORPHINE
  23. BUPRENORPHINE [Concomitant]
     Active Substance: BUPRENORPHINE
     Dates: start: 20221011
  24. GENTAMICIN [Concomitant]
     Active Substance: GENTAMICIN
     Dates: start: 20240226, end: 20240226
  25. ACETAMINOPHEN [Concomitant]
     Active Substance: ACETAMINOPHEN
  26. ACETAMINOPHEN [Concomitant]
     Active Substance: ACETAMINOPHEN
     Dates: start: 20230526
  27. NOVORAPID [Concomitant]
     Active Substance: INSULIN ASPART
     Dates: start: 20231103
  28. CETIRIZINE [Concomitant]
     Active Substance: CETIRIZINE HYDROCHLORIDE
     Indication: Prophylaxis
  29. CETIRIZINE [Concomitant]
     Active Substance: CETIRIZINE HYDROCHLORIDE
     Dates: start: 20230526
  30. CETIRIZINE [Concomitant]
     Active Substance: CETIRIZINE HYDROCHLORIDE
  31. CARVEDILOL [Concomitant]
     Active Substance: CARVEDILOL
     Indication: Prophylaxis
  32. CARVEDILOL [Concomitant]
     Active Substance: CARVEDILOL
     Dates: start: 20230628
  33. CARVEDILOL [Concomitant]
     Active Substance: CARVEDILOL
  34. GLUCOSE 40% ORAL GEL [Concomitant]
     Dates: start: 20231002
  35. METOCLOPRAMIDE [Concomitant]
     Active Substance: METOCLOPRAMIDE
     Indication: Prophylaxis
  36. METOCLOPRAMIDE [Concomitant]
     Active Substance: METOCLOPRAMIDE
     Dates: start: 20230623
  37. METOCLOPRAMIDE [Concomitant]
     Active Substance: METOCLOPRAMIDE
  38. AYMES [Concomitant]
     Dates: start: 20230710
  39. LANTUS [Concomitant]
     Active Substance: INSULIN GLARGINE
  40. LANTUS [Concomitant]
     Active Substance: INSULIN GLARGINE
     Dates: start: 20231002
  41. FEXOFENADINE [Concomitant]
     Active Substance: FEXOFENADINE HYDROCHLORIDE
  42. FEXOFENADINE [Concomitant]
     Active Substance: FEXOFENADINE HYDROCHLORIDE
     Dates: start: 20231212
  43. FEXOFENADINE [Concomitant]
     Active Substance: FEXOFENADINE HYDROCHLORIDE
  44. MINERAL OIL\PARAFFIN [Concomitant]
     Active Substance: MINERAL OIL\PARAFFIN
  45. MINERAL OIL\PARAFFIN [Concomitant]
     Active Substance: MINERAL OIL\PARAFFIN
     Dates: start: 20240102
  46. FOLIC ACID [Concomitant]
     Active Substance: FOLIC ACID
  47. FOLIC ACID [Concomitant]
     Active Substance: FOLIC ACID
     Dates: start: 20240305
  48. FOLIC ACID [Concomitant]
     Active Substance: FOLIC ACID
  49. PREGABALIN [Concomitant]
     Active Substance: PREGABALIN
     Dates: start: 20200330, end: 20240326

REACTIONS (6)
  - Acute kidney injury [Recovered/Resolved]
  - Hypophosphataemia [Recovered/Resolved]
  - Blood creatinine increased [Not Recovered/Not Resolved]
  - Platelet count decreased [Not Recovered/Not Resolved]
  - Hypothyroidism [Not Recovered/Not Resolved]
  - Chronic kidney disease [Not Recovered/Not Resolved]

NARRATIVE: CASE EVENT DATE: 20240320
